FAERS Safety Report 23664607 (Version 2)
Quarter: 2024Q2

REPORT INFORMATION
  Report Type: Spontaneous
  Country: GB (occurrence: None)
  Receive Date: 20240322
  Receipt Date: 20240515
  Transmission Date: 20240716
  Serious: Yes (Congenital Anomaly, Other)
  Sender: FDA-Public Use
  Company Number: 2024A068602

PATIENT
  Age: 8 Year
  Sex: Male

DRUGS (1)
  1. QUETIAPINE [Suspect]
     Active Substance: QUETIAPINE
     Indication: Product used for unknown indication
     Dosage: 300MG BD; ;
     Route: 064

REACTIONS (7)
  - Maternal exposure timing unspecified [Unknown]
  - Neuroblastoma [Recovered/Resolved]
  - Autism spectrum disorder [Not Recovered/Not Resolved]
  - Attention deficit hyperactivity disorder [Not Recovered/Not Resolved]
  - Lymphadenopathy [Unknown]
  - Skin mass [Unknown]
  - Metastases to liver [Unknown]
